FAERS Safety Report 4924689-3 (Version None)
Quarter: 2006Q1

REPORT INFORMATION
  Report Type: 
  Country: None (occurrence: None)
  Receive Date: 20060222
  Receipt Date: 20060206
  Transmission Date: 20060701
  Serious: Yes (Death)
  Sender: FDA-Public Use
  Company Number: MK200602-0184-1

PATIENT
  Age: 26 Year
  Sex: Male

DRUGS (2)
  1. CLOMIPRAMINE HCL [Suspect]
  2. ETHANOL [Concomitant]

REACTIONS (4)
  - ALCOHOL INTERACTION [None]
  - DRUG TOXICITY [None]
  - HEPATOTOXICITY [None]
  - OVERDOSE [None]
